FAERS Safety Report 15091105 (Version 1)
Quarter: 2018Q2

REPORT INFORMATION
  Report Type: Spontaneous
  Country: US (occurrence: US)
  Receive Date: 20180629
  Receipt Date: 20180629
  Transmission Date: 20180711
  Serious: No
  Sender: FDA-Public Use
  Company Number: US-AMGEN-USASP2014085960

PATIENT
  Age: 73 Year
  Sex: Female

DRUGS (2)
  1. PROLIA [Suspect]
     Active Substance: DENOSUMAB
     Indication: OSTEOPOROSIS POSTMENOPAUSAL
     Dosage: UNK
     Route: 065
  2. CALCIUM [Concomitant]
     Active Substance: CALCIUM

REACTIONS (7)
  - Feeling jittery [Unknown]
  - Bone pain [Unknown]
  - Insomnia [Unknown]
  - Influenza like illness [Recovered/Resolved]
  - Vitamin D decreased [Unknown]
  - Immune system disorder [Unknown]
  - Platelet disorder [Unknown]
